FAERS Safety Report 10668062 (Version 1)
Quarter: 2014Q4

REPORT INFORMATION
  Report Type: Spontaneous
  Country: US (occurrence: US)
  Receive Date: 20141222
  Receipt Date: 20141222
  Transmission Date: 20150529
  Serious: Yes (Other)
  Sender: FDA-Public Use
  Company Number: US-AMGEN-USASP2014098689

PATIENT
  Age: 73 Year
  Sex: Female
  Weight: 59.86 kg

DRUGS (9)
  1. METOPROLOL [Concomitant]
     Active Substance: METOPROLOL
  2. VITAMIN D                          /00107901/ [Concomitant]
     Active Substance: ERGOCALCIFEROL
     Dosage: 1000 MG, UNK
  3. KLOR-CON [Concomitant]
     Active Substance: POTASSIUM CHLORIDE
     Dosage: 10 MG, UNK
  4. WARFARIN [Concomitant]
     Active Substance: WARFARIN
     Dosage: 3 MG, UNK
  5. SIMVASTATIN. [Concomitant]
     Active Substance: SIMVASTATIN
     Dosage: 10 MG, UNK
  6. LOVENOX [Concomitant]
     Active Substance: ENOXAPARIN SODIUM
  7. PROLIA [Suspect]
     Active Substance: DENOSUMAB
     Indication: OSTEOPOROSIS POSTMENOPAUSAL
     Dosage: UNK UNK, Q6MO
     Route: 065
     Dates: start: 2014
  8. LASIX [Concomitant]
     Active Substance: FUROSEMIDE
     Indication: SWELLING
     Dosage: 80 MG, UNK
  9. PREMARIN [Concomitant]
     Active Substance: ESTROGENS, CONJUGATED

REACTIONS (11)
  - Paraesthesia [Unknown]
  - Sciatica [Recovering/Resolving]
  - Pain [Unknown]
  - Peripheral swelling [Recovered/Resolved]
  - Fluid retention [Unknown]
  - Fatigue [Recovering/Resolving]
  - Musculoskeletal discomfort [Unknown]
  - Skin injury [Unknown]
  - Muscle spasms [Unknown]
  - Depression [Not Recovered/Not Resolved]
  - Arthropathy [Unknown]
